FAERS Safety Report 20148706 (Version 3)
Quarter: 2022Q1

REPORT INFORMATION
  Report Type: Report from Study
  Country: DO (occurrence: DO)
  Receive Date: 20211204
  Receipt Date: 20220210
  Transmission Date: 20220423
  Serious: Yes (Hospitalization, Other)
  Sender: FDA-Public Use
  Company Number: DO-NOVARTISPH-NVSC2021DO153174

PATIENT
  Sex: Female

DRUGS (5)
  1. ELTROMBOPAG OLAMINE [Suspect]
     Active Substance: ELTROMBOPAG OLAMINE
     Indication: Thrombocytopenia
     Dosage: 50 MG, QD
     Route: 048
     Dates: start: 20210525
  2. ELTROMBOPAG OLAMINE [Suspect]
     Active Substance: ELTROMBOPAG OLAMINE
     Indication: Anaemia
     Dosage: 50 MG, QD
     Route: 048
     Dates: start: 20210526
  3. ELTROMBOPAG OLAMINE [Suspect]
     Active Substance: ELTROMBOPAG OLAMINE
     Indication: Aplastic anaemia
  4. ELTROMBOPAG OLAMINE [Suspect]
     Active Substance: ELTROMBOPAG OLAMINE
     Indication: Immune thrombocytopenia
  5. VITAMIN C [Concomitant]
     Active Substance: ASCORBIC ACID
     Indication: Product used for unknown indication
     Dosage: UNK
     Route: 065

REACTIONS (15)
  - Haemoglobin decreased [Unknown]
  - Infection [Unknown]
  - Platelet count abnormal [Unknown]
  - Asphyxia [Recovering/Resolving]
  - Haematoma [Unknown]
  - Contusion [Recovering/Resolving]
  - Oral contusion [Recovering/Resolving]
  - Abdominal discomfort [Unknown]
  - Epistaxis [Recovered/Resolved]
  - Mouth haemorrhage [Unknown]
  - Petechiae [Unknown]
  - Swelling [Unknown]
  - Weight abnormal [Recovering/Resolving]
  - Movement disorder [Recovering/Resolving]
  - Drug ineffective [Unknown]
